FAERS Safety Report 20436230 (Version 10)
Quarter: 2022Q4

REPORT INFORMATION
  Report Type: Report from Study
  Country: CN (occurrence: CN)
  Receive Date: 20220207
  Receipt Date: 20221205
  Transmission Date: 20230113
  Serious: Yes (Other)
  Sender: FDA-Public Use
  Company Number: CN-TAKEDA-2022TUS007040

PATIENT
  Age: 65 Year
  Sex: Female
  Weight: 60 kg

DRUGS (9)
  1. IXAZOMIB [Suspect]
     Active Substance: IXAZOMIB
     Indication: Plasma cell myeloma
     Dosage: 4 MILLIGRAM
     Route: 048
     Dates: start: 20211220
  2. GLUTATHIONE [Concomitant]
     Active Substance: GLUTATHIONE
     Indication: Prophylaxis
     Dosage: 1.8 GRAM, QD
     Route: 042
     Dates: start: 20211220, end: 20220128
  3. METHYLCOBALAMIN [Concomitant]
     Active Substance: METHYLCOBALAMIN
     Indication: Neuropathy peripheral
     Dosage: 500 MICROGRAM, QD
     Route: 042
     Dates: start: 20211220, end: 20220106
  4. RIBOFLAVIN 5^-PHOSPHATE SODIUM ANHYDROUS [Concomitant]
     Active Substance: RIBOFLAVIN 5^-PHOSPHATE SODIUM ANHYDROUS
     Indication: Prophylaxis
     Dosage: 20 MILLIGRAM, QD
     Route: 042
     Dates: start: 20211220, end: 20211225
  5. NADROPARIN [Concomitant]
     Active Substance: NADROPARIN
     Indication: Venous thrombosis
     Dosage: UNK
     Route: 058
     Dates: start: 20211220, end: 20211221
  6. FAMOTIDINE [Concomitant]
     Active Substance: FAMOTIDINE
     Indication: Prophylaxis
     Dosage: 20 MILLIGRAM, BID
     Route: 042
     Dates: start: 20211220, end: 20220106
  7. DOLASETRON MESYLATE [Concomitant]
     Active Substance: DOLASETRON MESYLATE
     Indication: Prophylaxis of nausea and vomiting
     Dosage: 75 MILLIGRAM, QD
     Route: 042
     Dates: start: 20211220, end: 20211231
  8. SODIUM BICARBONATE [Concomitant]
     Active Substance: SODIUM BICARBONATE
     Dosage: 500 MILLILITER, QD
     Route: 042
     Dates: start: 20211220, end: 20211227
  9. ENALAPRIL [Concomitant]
     Active Substance: ENALAPRIL
     Indication: Hypertension
     Dosage: UNK
     Route: 048
     Dates: start: 2021

REACTIONS (14)
  - Hypokalaemia [Recovered/Resolved]
  - Hypothyroidism [Not Recovered/Not Resolved]
  - Hyponatraemia [Not Recovered/Not Resolved]
  - Lymphocyte count decreased [Recovering/Resolving]
  - Constipation [Recovering/Resolving]
  - Platelet count decreased [Not Recovered/Not Resolved]
  - Abdominal discomfort [Not Recovered/Not Resolved]
  - White blood cell count decreased [Recovering/Resolving]
  - Gastrointestinal infection [Recovered/Resolved]
  - Hypoglycaemia [Recovering/Resolving]
  - Decreased appetite [Recovered/Resolved]
  - Neutrophil count decreased [Recovered/Resolved]
  - Laryngeal pain [Recovering/Resolving]
  - Off label use [Unknown]

NARRATIVE: CASE EVENT DATE: 20211220
